FAERS Safety Report 5906078-8 (Version None)
Quarter: 2008Q4

REPORT INFORMATION
  Report Type: 
  Country: None (occurrence: None)
  Receive Date: 20081002
  Receipt Date: 20080923
  Transmission Date: 20090506
  Serious: Yes (Hospitalization)
  Sender: FDA-Public Use
  Company Number: PHHY2008GB17746

PATIENT
  Sex: Male

DRUGS (10)
  1. CLOZARIL [Suspect]
     Indication: SCHIZOPHRENIA
     Dosage: 300 MG DAILY
     Route: 048
     Dates: start: 20040101, end: 20080723
  2. FERROUS SULPHATE (NGX) [Suspect]
     Dosage: 600 MG/ DAY
     Route: 048
     Dates: start: 20080610, end: 20080714
  3. VALPROATE SODIUM [Concomitant]
     Indication: EPILEPSY
     Dosage: 400 MG, BID
     Route: 048
     Dates: start: 20080712
  4. AMISULPRIDE [Concomitant]
     Indication: SCHIZOPHRENIA
     Dosage: 300 MG/DAY
     Route: 048
     Dates: start: 20080712
  5. LACTULOSE [Concomitant]
     Indication: CONSTIPATION
     Dosage: 15 MG, BID
     Route: 048
     Dates: start: 20080712, end: 20080721
  6. BECLOMETHASONE DIPROPIONATE [Concomitant]
     Indication: ASTHMA
     Dosage: 15 MG, BID
     Route: 048
     Dates: start: 20080712
  7. IPRATROPIUM BROMIDE [Concomitant]
     Indication: SALIVARY HYPERSECRETION
     Dosage: UNK
     Route: 045
     Dates: start: 20080711, end: 20080718
  8. FYBOGEL [Concomitant]
     Indication: CONSTIPATION
     Dosage: UNK
     Route: 048
     Dates: start: 20080711, end: 20080714
  9. LANSOPRAZOLE [Concomitant]
     Dosage: 30 MG DAILY
     Route: 048
     Dates: start: 20080206, end: 20080807
  10. ASCORBIC ACID [Concomitant]
     Dosage: 500 MG DAILY
     Route: 048
     Dates: start: 20080206, end: 20080714

REACTIONS (7)
  - ABDOMINAL PAIN [None]
  - COLECTOMY [None]
  - CONSTIPATION [None]
  - GASTROINTESTINAL NECROSIS [None]
  - IRON DEFICIENCY ANAEMIA [None]
  - LAPAROSCOPIC SURGERY [None]
  - X-RAY ABNORMAL [None]
